FAERS Safety Report 8103846 (Version 2)
Quarter: 2013Q1

REPORT INFORMATION
  Report Type: Spontaneous
  Country: JP (occurrence: JP)
  Receive Date: 20110824
  Receipt Date: 20130319
  Transmission Date: 20140127
  Serious: Yes (Hospitalization)
  Sender: FDA-Public Use
  Company Number: JP-ROCHE-718159

PATIENT
  Age: 11 Year
  Sex: Male
  Weight: 25.7 kg

DRUGS (83)
  1. ROCEPHINE [Suspect]
     Indication: INFECTION
     Route: 041
     Dates: start: 20100630, end: 20100707
  2. PHENOBAL [Suspect]
     Indication: PRODUCT USED FOR UNKNOWN INDICATION
     Route: 048
     Dates: start: 20100622, end: 20100623
  3. PHENOBAL [Suspect]
     Route: 048
     Dates: start: 20100624, end: 20100625
  4. PHENOBAL [Suspect]
     Route: 048
     Dates: start: 20100626, end: 20100709
  5. CALONAL [Suspect]
     Indication: PYREXIA
     Dosage: NOTE: AT THE THERMACOGENESIS PAIN
     Route: 048
     Dates: start: 20100627, end: 20100716
  6. CALONAL [Suspect]
     Dosage: NOTE: AT THE THERMACOGENESIS PAIN
     Route: 048
     Dates: start: 20100627, end: 20100716
  7. CERCINE [Suspect]
     Indication: PRODUCT USED FOR UNKNOWN INDICATION
     Route: 048
     Dates: start: 20100622, end: 20100626
  8. CERCINE [Suspect]
     Route: 048
     Dates: start: 20100627, end: 20100701
  9. CERCINE [Suspect]
     Route: 048
     Dates: start: 20100702, end: 20100722
  10. TAKEPRON [Suspect]
     Indication: PRODUCT USED FOR UNKNOWN INDICATION
     Route: 048
     Dates: start: 20100628, end: 20100701
  11. TAKEPRON [Suspect]
     Route: 048
     Dates: start: 20100702, end: 20100728
  12. CEFAZOLIN SODIUM [Suspect]
     Indication: PRODUCT USED FOR UNKNOWN INDICATION
     Route: 041
     Dates: start: 20100622, end: 20100624
  13. VICCILLIN [Suspect]
     Indication: PRODUCT USED FOR UNKNOWN INDICATION
     Route: 041
     Dates: start: 20100625, end: 20100630
  14. CLINDAMYCIN PHOSPHATE [Suspect]
     Indication: PRODUCT USED FOR UNKNOWN INDICATION
     Route: 041
     Dates: start: 20100708, end: 20100710
  15. PIPERACILLIN SODIUM [Suspect]
     Indication: PRODUCT USED FOR UNKNOWN INDICATION
     Dosage: DRUG: PENMALIN
     Route: 041
     Dates: start: 20100715, end: 20100716
  16. BIOFERMIN R [Suspect]
     Indication: PRODUCT USED FOR UNKNOWN INDICATION
     Route: 048
     Dates: start: 20100711, end: 20100718
  17. BIOFERMIN [Suspect]
     Indication: PRODUCT USED FOR UNKNOWN INDICATION
     Route: 048
     Dates: start: 20100711, end: 20100718
  18. RISPERDAL [Suspect]
     Indication: PRODUCT USED FOR UNKNOWN INDICATION
     Dosage: FORM: PERORAL LIQUID PREPARATION
     Route: 048
     Dates: start: 20100702, end: 20100714
  19. MORPHINE HYDROCHLORIDE [Suspect]
     Indication: PRODUCT USED FOR UNKNOWN INDICATION
     Route: 041
     Dates: start: 20100621, end: 20100625
  20. MORPHINE HYDROCHLORIDE [Suspect]
     Route: 041
     Dates: start: 20100701, end: 20100709
  21. LASIX [Suspect]
     Indication: PRODUCT USED FOR UNKNOWN INDICATION
     Route: 048
     Dates: start: 20100626, end: 20100627
  22. LASIX [Suspect]
     Route: 048
     Dates: start: 20100628, end: 20100704
  23. LASIX [Suspect]
     Route: 048
     Dates: start: 20100705, end: 20100706
  24. ALDACTONE A [Suspect]
     Indication: PRODUCT USED FOR UNKNOWN INDICATION
     Route: 048
     Dates: start: 20100626, end: 20100627
  25. ALDACTONE A [Suspect]
     Route: 048
     Dates: start: 20100628, end: 20100704
  26. ALDACTONE A [Suspect]
     Route: 048
     Dates: start: 20100705, end: 20100706
  27. LACTOBACILLUS CASEI [Suspect]
     Indication: PRODUCT USED FOR UNKNOWN INDICATION
     Dosage: DRUG: BIOLACTIS
     Route: 048
     Dates: start: 20100702, end: 20100709
  28. DEPAS [Suspect]
     Indication: PRODUCT USED FOR UNKNOWN INDICATION
     Route: 048
     Dates: start: 20100701, end: 20100701
  29. TRICLORYL [Suspect]
     Indication: PRODUCT USED FOR UNKNOWN INDICATION
     Route: 048
     Dates: start: 20100628, end: 20100628
  30. TRICLORYL [Suspect]
     Route: 048
     Dates: start: 20100630, end: 20100630
  31. TRICLORYL [Suspect]
     Route: 048
     Dates: start: 20100701, end: 20100701
  32. TRICLORYL [Suspect]
     Route: 048
     Dates: start: 20100702, end: 20100702
  33. TRICLORYL [Suspect]
     Route: 048
     Dates: start: 20100705, end: 20100705
  34. LAXOBERON [Suspect]
     Indication: PRODUCT USED FOR UNKNOWN INDICATION
     Route: 048
     Dates: start: 20100620, end: 20100620
  35. OMEPRAL [Suspect]
     Indication: PRODUCT USED FOR UNKNOWN INDICATION
     Route: 041
     Dates: start: 20100716, end: 20100721
  36. CERCINE [Suspect]
     Indication: PRODUCT USED FOR UNKNOWN INDICATION
     Route: 048
     Dates: start: 20100702, end: 20100712
  37. CERCINE [Suspect]
     Route: 048
     Dates: start: 20100713, end: 20100715
  38. CERCINE [Suspect]
     Route: 048
     Dates: start: 20100716, end: 20100716
  39. CERCINE [Suspect]
     Route: 048
     Dates: start: 20100717, end: 20100717
  40. CERCINE [Suspect]
     Route: 048
     Dates: start: 20100718, end: 20100718
  41. CERCINE [Suspect]
     Route: 048
     Dates: start: 20100719, end: 20100720
  42. CERCINE [Suspect]
     Route: 048
     Dates: start: 20100721, end: 20100721
  43. CERCINE [Suspect]
     Route: 048
     Dates: start: 20100722, end: 20100722
  44. TAKEPRON [Suspect]
     Indication: PRODUCT USED FOR UNKNOWN INDICATION
     Route: 048
     Dates: start: 20100702, end: 20100709
  45. TAKEPRON [Suspect]
     Route: 048
     Dates: start: 20100721, end: 20100728
  46. HEPARINE CHOAY [Suspect]
     Indication: PRODUCT USED FOR UNKNOWN INDICATION
     Route: 041
     Dates: start: 20100808, end: 20100812
  47. HEPARIN SODIUM [Suspect]
     Indication: PRODUCT USED FOR UNKNOWN INDICATION
     Dosage: DRUG: HEPAFLUSH
     Route: 041
  48. GLYCEOL [Suspect]
     Indication: PRODUCT USED FOR UNKNOWN INDICATION
     Route: 041
     Dates: start: 20100617, end: 20100618
  49. DECADRON [Suspect]
     Indication: PRODUCT USED FOR UNKNOWN INDICATION
     Route: 041
     Dates: start: 20100617, end: 20100617
  50. DECADRON [Suspect]
     Route: 041
     Dates: start: 20100622, end: 20100622
  51. DECADRON [Suspect]
     Route: 041
     Dates: start: 20100623, end: 20100623
  52. MIDAZOLAM [Suspect]
     Indication: PRODUCT USED FOR UNKNOWN INDICATION
     Route: 041
     Dates: start: 20100621, end: 20100621
  53. ATROPINE SULFATE [Suspect]
     Indication: PRODUCT USED FOR UNKNOWN INDICATION
     Route: 041
     Dates: start: 20100617, end: 20100617
  54. ATROPINE SULFATE [Suspect]
     Route: 041
     Dates: start: 20100619, end: 20100619
  55. ATROPINE SULFATE [Suspect]
     Route: 041
     Dates: start: 20100622, end: 20100622
  56. DORMICUM [Suspect]
     Indication: PRODUCT USED FOR UNKNOWN INDICATION
     Route: 041
     Dates: start: 20100617, end: 20100617
  57. DORMICUM [Suspect]
     Route: 041
     Dates: start: 20100619, end: 20100619
  58. DORMICUM [Suspect]
     Route: 041
     Dates: start: 20100621, end: 20100627
  59. DORMICUM [Suspect]
     Route: 041
     Dates: start: 20100709, end: 20100709
  60. EPINEPHRINE [Suspect]
     Indication: PRODUCT USED FOR UNKNOWN INDICATION
     Route: 041
     Dates: start: 20100621, end: 20100621
  61. CALCICOL [Suspect]
     Indication: PRODUCT USED FOR UNKNOWN INDICATION
     Route: 041
     Dates: start: 20100621, end: 20100621
  62. FENTANYL [Suspect]
     Indication: PRODUCT USED FOR UNKNOWN INDICATION
     Dosage: DOSAGE IS UNCERTAIN
     Route: 041
     Dates: start: 20100621, end: 20100621
  63. FENTANYL [Suspect]
     Dosage: DOSAGE IS UNCERTAIN
     Route: 041
     Dates: start: 20100708, end: 20100708
  64. ULTIVA [Suspect]
     Indication: PRODUCT USED FOR UNKNOWN INDICATION
     Dosage: DOSAGE IS UNCERTAIN
     Route: 041
     Dates: start: 20100621, end: 20100621
  65. ULTIVA [Suspect]
     Dosage: DOSAGE IS UNCERTAIN
     Route: 041
     Dates: start: 20100708, end: 20100708
  66. NICARPINE [Suspect]
     Indication: PRODUCT USED FOR UNKNOWN INDICATION
     Route: 041
     Dates: start: 20100622, end: 20100624
  67. PRECEDEX [Suspect]
     Indication: PRODUCT USED FOR UNKNOWN INDICATION
     Route: 041
     Dates: start: 20100704, end: 20100705
  68. ROCURONIUM [Suspect]
     Indication: PRODUCT USED FOR UNKNOWN INDICATION
     Route: 041
     Dates: start: 20100617, end: 20100617
  69. ROCURONIUM [Suspect]
     Route: 041
     Dates: start: 20100619, end: 20100619
  70. ROCURONIUM [Suspect]
     Route: 041
     Dates: start: 20100621, end: 20100621
  71. ROCURONIUM [Suspect]
     Route: 041
     Dates: start: 20100706, end: 20100706
  72. XYLOCAINE [Suspect]
     Indication: PRODUCT USED FOR UNKNOWN INDICATION
     Route: 041
     Dates: start: 20100621, end: 20100621
  73. XYLOCAINE [Suspect]
     Route: 041
     Dates: start: 20100709, end: 20100709
  74. PANTOLOC [Suspect]
     Indication: PRODUCT USED FOR UNKNOWN INDICATION
     Route: 041
     Dates: start: 20100604, end: 20100705
  75. ATARAX-P [Suspect]
     Indication: PRODUCT USED FOR UNKNOWN INDICATION
     Route: 041
     Dates: start: 20100709, end: 20100709
  76. ANHIBA [Suspect]
     Indication: PRODUCT USED FOR UNKNOWN INDICATION
     Dosage: 1-2 PIECES PER TIME
     Route: 054
     Dates: start: 20100630, end: 20100716
  77. ROPION [Suspect]
     Indication: PRODUCT USED FOR UNKNOWN INDICATION
     Route: 041
     Dates: start: 20100709, end: 20100709
  78. TARIVID /SCH/ [Suspect]
     Indication: PRODUCT USED FOR UNKNOWN INDICATION
     Dosage: DOSAGE IS UNCERTAIN
     Route: 047
     Dates: start: 20100728, end: 20100729
  79. HYALEIN [Suspect]
     Indication: PRODUCT USED FOR UNKNOWN INDICATION
     Dosage: DOSAGE IS UNCERTAIN
     Route: 047
     Dates: start: 20100723, end: 20100821
  80. GLYCERIN [Suspect]
     Indication: CONSTIPATION
     Dosage: FORM: ENEMA, 1 PIECE/ TIME AT OBSTIPATION
     Route: 054
  81. FAMOTIDINE [Suspect]
     Indication: PRODUCT USED FOR UNKNOWN INDICATION
     Route: 041
     Dates: start: 20100617, end: 20100626
  82. FAMOTIDINE [Suspect]
     Indication: PRODUCT USED FOR UNKNOWN INDICATION
     Route: 048
     Dates: start: 20100626, end: 20100627
  83. FAMOTIDINE [Suspect]
     Route: 048
     Dates: start: 20100709, end: 20100715

REACTIONS (1)
  - Drug reaction with eosinophilia and systemic symptoms [Recovering/Resolving]
